FAERS Safety Report 19645029 (Version 1)
Quarter: 2021Q3

REPORT INFORMATION
  Report Type: Other
  Country: US (occurrence: US)
  Receive Date: 20210802
  Receipt Date: 20210802
  Transmission Date: 20211014
  Serious: Yes (Hospitalization)
  Sender: FDA-Public Use
  Company Number: US-INTERCEPT-PM2021002316

PATIENT
  Age: 48 Year
  Sex: Female

DRUGS (1)
  1. OCALIVA [Suspect]
     Active Substance: OBETICHOLIC ACID
     Indication: PRIMARY BILIARY CHOLANGITIS
     Dosage: 5 MILLIGRAM, QD
     Route: 048
     Dates: start: 202008

REACTIONS (6)
  - Surgery [Unknown]
  - Splenomegaly [Unknown]
  - Nephrolithiasis [Unknown]
  - Renal pain [Unknown]
  - Urinary tract obstruction [Unknown]
  - Illness [Unknown]

NARRATIVE: CASE EVENT DATE: 20210719
